FAERS Safety Report 10159643 (Version 1)
Quarter: 2014Q2

REPORT INFORMATION
  Report Type: Report from Study
  Country: GB (occurrence: GB)
  Receive Date: 20140508
  Receipt Date: 20140508
  Transmission Date: 20141212
  Serious: Yes (Death)
  Sender: FDA-Public Use
  Company Number: GB-MYLANLABS-2014S1009940

PATIENT
  Age: 16 Year
  Sex: Female

DRUGS (2)
  1. METHADONE [Suspect]
     Indication: COMPLETED SUICIDE
     Route: 065
  2. DOSULEPIN [Suspect]
     Indication: COMPLETED SUICIDE
     Route: 065

REACTIONS (2)
  - Toxicity to various agents [Fatal]
  - Completed suicide [Fatal]
